FAERS Safety Report 21677235 (Version 1)
Quarter: 2022Q4

REPORT INFORMATION
  Report Type: Spontaneous
  Country: US (occurrence: US)
  Receive Date: 20221203
  Receipt Date: 20221203
  Transmission Date: 20230112
  Serious: No
  Sender: FDA-Public Use
  Company Number: US-drreddys-SPO/USA/22/0157162

PATIENT
  Age: 38 Year
  Sex: Female

DRUGS (1)
  1. ZENATANE [Suspect]
     Active Substance: ISOTRETINOIN
     Indication: Product used for unknown indication
     Dosage: RMA ISSUE DATE: 24 AUGUST 2022 03:33:22 PM AND 21 SEPTEMBER 2022 09:17:26 AM

REACTIONS (1)
  - Adverse drug reaction [Unknown]
